FAERS Safety Report 18792935 (Version 1)
Quarter: 2021Q1

REPORT INFORMATION
  Report Type: Spontaneous
  Country: US (occurrence: US)
  Receive Date: 20210127
  Receipt Date: 20210127
  Transmission Date: 20210419
  Serious: No
  Sender: FDA-Public Use
  Company Number: US-PFIZER INC-2018517070

PATIENT
  Age: 72 Year
  Sex: Female

DRUGS (1)
  1. PREMARIN [Suspect]
     Active Substance: ESTROGENS, CONJUGATED
     Indication: RUPTURED CEREBRAL ANEURYSM
     Dosage: 2 G, WEEKLY (2 GRAM TO VAGINA ONCE A WEEK)
     Route: 067

REACTIONS (2)
  - Off label use [Unknown]
  - Confusional state [Unknown]
